FAERS Safety Report 7887948-0 (Version None)
Quarter: 2011Q4

REPORT INFORMATION
  Report Type: 
  Country: None (occurrence: None)
  Receive Date: 20111103
  Receipt Date: 20111025
  Transmission Date: 20120403
  Serious: Yes (Other)
  Sender: FDA-Public Use
  Company Number: US-JNJFOC-20111011292

PATIENT
  Age: 74 Year
  Sex: Female

DRUGS (1)
  1. HALDOL [Suspect]
     Indication: SCHIZOPHRENIA
     Route: 030

REACTIONS (4)
  - DECREASED ACTIVITY [None]
  - FALL [None]
  - TARDIVE DYSKINESIA [None]
  - BACK PAIN [None]
